FAERS Safety Report 8774126 (Version 2)
Quarter: 2012Q4

REPORT INFORMATION
  Report Type: 
  Country: US (occurrence: US)
  Receive Date: 20120907
  Receipt Date: 20121207
  Transmission Date: 20130627
  Serious: Yes (Hospitalization)
  Sender: FDA-Public Use
  Company Number: US-BAYER-2012-090701

PATIENT
  Age: 26 Year
  Sex: Female
  Weight: 68.03 kg

DRUGS (2)
  1. YAZ [Suspect]
     Indication: CONTRACEPTION
     Dosage: UNK
     Dates: start: 20091101, end: 20100801
  2. PRENATAL VITAMINS [Concomitant]
     Route: 048

REACTIONS (3)
  - Deep vein thrombosis [None]
  - Thrombosis [None]
  - Thrombophlebitis superficial [None]
